FAERS Safety Report 7611347-X (Version None)
Quarter: 2011Q3

REPORT INFORMATION
  Report Type: 
  Country: None (occurrence: None)
  Receive Date: 20110707
  Receipt Date: 20110628
  Transmission Date: 20111222
  Serious: Yes (Other)
  Sender: FDA-Public Use
  Company Number: WAES 1107USA00034

PATIENT

DRUGS (2)
  1. VANDETANIB [Suspect]
     Indication: BRAIN STEM GLIOMA
     Dosage: 145 MG/M2, DAILY, IV
     Route: 042
  2. DECADRON [Suspect]
     Indication: NERVOUS SYSTEM DISORDER
     Dosage: PO
     Route: 048

REACTIONS (3)
  - POSTERIOR REVERSIBLE ENCEPHALOPATHY SYNDROME [None]
  - DIARRHOEA [None]
  - HYPERTENSION [None]
